FAERS Safety Report 10005852 (Version 1)
Quarter: 2014Q1

REPORT INFORMATION
  Report Type: Spontaneous
  Country: BR (occurrence: BR)
  Receive Date: 20140313
  Receipt Date: 20140313
  Transmission Date: 20141002
  Serious: Yes (Hospitalization)
  Sender: FDA-Public Use
  Company Number: BR-ACCORD-022519

PATIENT
  Age: 75 Year
  Sex: Male
  Weight: 68.5 kg

DRUGS (12)
  1. FLUOROURACIL [Suspect]
     Indication: RECTAL CANCER
     Dosage: 50MG/ML FRASCO AMPOLA10 ML
     Route: 042
     Dates: start: 20140214, end: 20140214
  2. TRAMADOL [Concomitant]
     Route: 042
     Dates: start: 20140213
  3. DEXAMETHASONE [Concomitant]
     Indication: RECTAL CANCER
     Route: 042
  4. METOCLOPRAMIDE [Concomitant]
     Indication: RECTAL CANCER
     Route: 042
  5. AMOXICILLIN [Concomitant]
     Route: 042
     Dates: end: 20140213
  6. ONDANSETRON [Concomitant]
     Indication: RECTAL CANCER
     Route: 042
  7. NO DRUG NAME [Concomitant]
     Route: 042
     Dates: end: 20140213
  8. DIPYRONE [Concomitant]
     Route: 042
  9. OXALIPLATIN [Concomitant]
     Indication: RECTAL CANCER
     Route: 042
  10. LOPERAMIDE [Concomitant]
     Route: 048
  11. CALCIUM FOLINATE/FOLINIC ACID/SODIUM FOLINATE [Concomitant]
     Indication: RECTAL CANCER
     Route: 042
  12. CLAVULANATE POTASSIUM/CLAVULANIC ACID [Concomitant]
     Route: 042
     Dates: end: 20140213

REACTIONS (7)
  - Chest pain [Recovering/Resolving]
  - Nausea [Recovering/Resolving]
  - Cough [Recovering/Resolving]
  - Vomiting [Recovering/Resolving]
  - Pyrexia [Recovering/Resolving]
  - Diarrhoea [Recovering/Resolving]
  - Renal failure [Recovering/Resolving]
